FAERS Safety Report 7893061-9 (Version None)
Quarter: 2011Q4

REPORT INFORMATION
  Report Type: 
  Country: None (occurrence: None)
  Receive Date: 20111104
  Receipt Date: 20111025
  Transmission Date: 20120403
  Serious: No
  Sender: FDA-Public Use
  Company Number: US-JNJFOC-20111100527

PATIENT
  Sex: Female
  Weight: 71.22 kg

DRUGS (6)
  1. XANAX [Concomitant]
     Route: 048
  2. FENTANYL-100 [Suspect]
     Route: 062
     Dates: start: 20110901, end: 20110901
  3. CODEINE SUL TAB [Concomitant]
     Indication: DIARRHOEA
     Route: 048
  4. FENTANYL-100 [Suspect]
     Route: 062
     Dates: start: 20110401, end: 20110401
  5. FENTANYL-100 [Suspect]
     Indication: PAIN
     Route: 062
     Dates: start: 20110901
  6. VITAMIN B-12 [Concomitant]
     Indication: GASTRIC BYPASS
     Dosage: MONTHLY
     Route: 050

REACTIONS (10)
  - RESTLESSNESS [None]
  - THERAPEUTIC RESPONSE UNEXPECTED [None]
  - WRONG TECHNIQUE IN DRUG USAGE PROCESS [None]
  - TREATMENT NONCOMPLIANCE [None]
  - WITHDRAWAL SYNDROME [None]
  - EATING DISORDER [None]
  - PRODUCT QUALITY ISSUE [None]
  - THERAPY CESSATION [None]
  - TREMOR [None]
  - INSOMNIA [None]
